FAERS Safety Report 19451531 (Version 1)
Quarter: 2021Q2

REPORT INFORMATION
  Report Type: Spontaneous
  Country: US (occurrence: US)
  Receive Date: 20210622
  Receipt Date: 20210622
  Transmission Date: 20210717
  Serious: Yes (Hospitalization)
  Sender: FDA-Public Use
  Company Number: None

PATIENT
  Age: 60 Year
  Sex: Male

DRUGS (10)
  1. OMEPRAZOLE. [Concomitant]
     Active Substance: OMEPRAZOLE
  2. SPIRONOLACT [Concomitant]
     Active Substance: SPIRONOLACTONE
  3. LANTUS [Concomitant]
     Active Substance: INSULIN GLARGINE
  4. INSULIN ASPA [Concomitant]
  5. INSULIN SYRG [Concomitant]
  6. ACTEMRA [Suspect]
     Active Substance: TOCILIZUMAB
     Route: 058
     Dates: start: 20210518
  7. CARVEDILOL. [Concomitant]
     Active Substance: CARVEDILOL
  8. BUMETANIDE. [Concomitant]
     Active Substance: BUMETANIDE
  9. BD PEN NEEDL [Concomitant]
  10. DOXYCYC MONO [Concomitant]
     Active Substance: DOXYCYCLINE

REACTIONS (2)
  - Hospitalisation [None]
  - Therapy interrupted [None]

NARRATIVE: CASE EVENT DATE: 20210621
